FAERS Safety Report 5965171-4 (Version None)
Quarter: 2008Q4

REPORT INFORMATION
  Report Type: 
  Country: None (occurrence: None)
  Receive Date: 20081125
  Receipt Date: 20081117
  Transmission Date: 20090506
  Serious: Yes (Other)
  Sender: FDA-Public Use
  Company Number: US-AMGEN-QUU303360

PATIENT
  Sex: Female

DRUGS (5)
  1. ENBREL [Suspect]
     Indication: RHEUMATOID ARTHRITIS
     Route: 058
     Dates: start: 20001001, end: 20080808
  2. CLARITIN [Concomitant]
  3. TYLENOL (CAPLET) [Concomitant]
  4. ZANTAC [Concomitant]
  5. VITAMIN TAB [Concomitant]

REACTIONS (3)
  - ABORTION SPONTANEOUS [None]
  - BREECH PRESENTATION [None]
  - RHEUMATOID ARTHRITIS [None]
